FAERS Safety Report 5729305-9 (Version None)
Quarter: 2008Q2

REPORT INFORMATION
  Report Type: 
  Country: None (occurrence: None)
  Receive Date: 20080430
  Receipt Date: 20080208
  Transmission Date: 20081010
  Serious: No
  Sender: FDA-Public Use
  Company Number: 2008PV034186

PATIENT
  Age: 60 Year
  Sex: Female

DRUGS (5)
  1. SYMLINPEN 60 (PRAMLINTIDE ACETATE) PEN-INJECTOR [Suspect]
     Indication: TYPE 1 DIABETES MELLITUS
     Dosage: 60 MCG;BID;SC
     Route: 058
     Dates: start: 20080208
  2. SYMLIN [Suspect]
     Indication: TYPE 1 DIABETES MELLITUS
     Dosage: 60 MCG;PRN;SC : 15 MCG;PRN;SC
     Route: 058
     Dates: start: 20071231, end: 20080101
  3. SYMLIN [Suspect]
     Indication: TYPE 1 DIABETES MELLITUS
     Dosage: 60 MCG;PRN;SC : 15 MCG;PRN;SC
     Route: 058
     Dates: start: 20071231, end: 20080208
  4. HUMALOG [Concomitant]
  5. LANTUS [Concomitant]

REACTIONS (3)
  - DECREASED APPETITE [None]
  - INCORRECT DOSE ADMINISTERED [None]
  - NAUSEA [None]
